FAERS Safety Report 4634239-7 (Version None)
Quarter: 2005Q2

REPORT INFORMATION
  Report Type: 
  Country: None (occurrence: None)
  Receive Date: 20050325
  Receipt Date: 20050127
  Transmission Date: 20051028
  Serious: No
  Sender: FDA-Public Use
  Company Number: USA041183763

PATIENT
  Age: 81 Year
  Sex: Female
  Weight: 53 kg

DRUGS (10)
  1. FORTEO [Suspect]
     Indication: OSTEOPOROSIS
     Dosage: 20 UG DAY
     Dates: start: 20030801
  2. AMARYL [Concomitant]
  3. ATIVAN [Concomitant]
  4. VITAMIN B-12 [Concomitant]
  5. FOLTZ [Concomitant]
  6. K-DUR 10 [Concomitant]
  7. LASIX [Concomitant]
  8. PREDNISONE [Concomitant]
  9. SENOKOT (SENNA ALEXANDRINA) [Concomitant]
  10. VIACTIV [Concomitant]

REACTIONS (2)
  - MUSCULAR WEAKNESS [None]
  - PAIN IN EXTREMITY [None]
